FAERS Safety Report 13403397 (Version 1)
Quarter: 2017Q2

REPORT INFORMATION
  Report Type: Spontaneous
  Country: US (occurrence: US)
  Receive Date: 20170405
  Receipt Date: 20170405
  Transmission Date: 20170830
  Serious: Yes (Other)
  Sender: FDA-Public Use
  Company Number: US-ASTRAZENECA-2017SE33402

PATIENT
  Sex: Female
  Weight: 90.7 kg

DRUGS (1)
  1. SEROQUEL XR [Suspect]
     Active Substance: QUETIAPINE FUMARATE
     Route: 048

REACTIONS (4)
  - Weight increased [Unknown]
  - Nightmare [Unknown]
  - Diabetes mellitus [Unknown]
  - Seizure [Unknown]
